FAERS Safety Report 6218079-3 (Version None)
Quarter: 2009Q2

REPORT INFORMATION
  Report Type: 
  Country: None (occurrence: None)
  Receive Date: 20090608
  Receipt Date: 20090529
  Transmission Date: 20091009
  Serious: Yes (Hospitalization)
  Sender: FDA-Public Use
  Company Number: JP-PFIZER INC-2009222034

PATIENT
  Age: 67 Year

DRUGS (20)
  1. FLUOROURACIL [Suspect]
     Indication: COLORECTAL CANCER
     Dosage: EVERY 2 WEEKS
     Route: 042
     Dates: start: 20090501
  2. SUNITINIB MALATE [Suspect]
     Indication: COLORECTAL CANCER
     Dosage: 25 MG, 1X/DAY
     Route: 048
     Dates: start: 20090501
  3. IRINOTECAN HCL [Suspect]
     Indication: COLORECTAL CANCER
     Dosage: EVERY 2 WEEKS
     Route: 042
     Dates: start: 20090501
  4. *FOLINIC ACID [Suspect]
     Indication: COLORECTAL CANCER
     Dosage: EVERY 2 WEEKS
     Route: 042
     Dates: start: 20090501
  5. GRANISETRON HYDROCHLORIDE [Concomitant]
     Dosage: UNK
     Route: 042
     Dates: start: 20090522, end: 20090522
  6. DEXAMETHASONE SODIUM PHOSPHATE [Concomitant]
     Dosage: UNK
     Route: 042
     Dates: start: 20090522, end: 20090522
  7. SODIUM BICARBONATE [Concomitant]
     Dosage: UNK
     Route: 048
     Dates: start: 20090522, end: 20090525
  8. URSODEOXYCHOLIC ACID [Concomitant]
     Dosage: UNK
     Route: 048
     Dates: start: 20090522, end: 20090525
  9. SILODOSIN [Concomitant]
     Dosage: UNK
     Route: 048
  10. CANDESARTAN CILEXETIL [Concomitant]
     Dosage: UNK
     Route: 048
  11. BUFORMIN HYDROCHLORIDE [Concomitant]
     Dosage: UNK
     Route: 048
  12. GLIMEPIRIDE [Concomitant]
     Dosage: UNK
     Route: 048
  13. LOPERAMIDE HYDROCHLORIDE [Concomitant]
     Dosage: UNK
     Route: 048
     Dates: start: 20090501, end: 20090524
  14. CEFCAPENE PIVOXIL HYDROCHLORIDE [Concomitant]
     Dosage: UNK
     Route: 048
     Dates: start: 20090513, end: 20090516
  15. REBAMIPIDE [Concomitant]
     Dosage: UNK
     Route: 048
     Dates: start: 20090513, end: 20090516
  16. TRIAMCINOLONE ACETONIDE [Concomitant]
     Dosage: UNK
     Route: 061
     Dates: start: 20090513
  17. HYDROCORTISONE [Concomitant]
     Dosage: UNK
     Route: 061
     Dates: start: 20090513, end: 20090519
  18. LENOGRASTIM [Concomitant]
     Dosage: UNK
     Route: 058
     Dates: start: 20090513, end: 20090531
  19. LANSOPRAZOLE [Concomitant]
     Dosage: UNK
     Route: 048
     Dates: start: 20090529
  20. INSULIN HUMAN [Concomitant]
     Dosage: UNK
     Route: 042
     Dates: start: 20090529, end: 20090529

REACTIONS (1)
  - CEREBRAL INFARCTION [None]
